FAERS Safety Report 7909318 (Version 4)
Quarter: 2012Q4

REPORT INFORMATION
  Report Type: 
  Country: US (occurrence: US)
  Receive Date: 20110421
  Receipt Date: 20120924
  Transmission Date: 20130627
  Serious: Yes (Other)
  Sender: FDA-Public Use
  Company Number: US-ASTRAZENECA-2010SE37685

PATIENT
  Age: 53 Year
  Sex: Male

DRUGS (2)
  1. TOPROL XL [Suspect]
     Route: 048
  2. TOPROL XL [Suspect]
     Route: 048

REACTIONS (6)
  - Self injurious behaviour [Unknown]
  - Aggression [Unknown]
  - Malaise [Unknown]
  - Adverse drug reaction [Unknown]
  - Fatigue [Unknown]
  - Anxiety [Unknown]
